FAERS Safety Report 8953228 (Version 2)
Quarter: 2013Q2

REPORT INFORMATION
  Report Type: Spontaneous
  Country: JP (occurrence: JP)
  Receive Date: 20121206
  Receipt Date: 20130404
  Transmission Date: 20140414
  Serious: Yes (Life-Threatening)
  Sender: FDA-Public Use
  Company Number: JP-009507513-1212JPN001438

PATIENT
  Age: 71 Year
  Sex: Male
  Weight: 60 kg

DRUGS (5)
  1. JANUVIA TABLETS 50MG [Suspect]
     Indication: TYPE 2 DIABETES MELLITUS
     Dosage: 50 MG, QD
     Route: 048
     Dates: start: 201102, end: 201211
  2. AMARYL [Concomitant]
     Dosage: 1 MG, QD
     Route: 065
  3. METGLUCO [Concomitant]
     Route: 065
  4. MELBIN [Concomitant]
     Route: 065
  5. PARIET [Concomitant]
     Route: 065

REACTIONS (1)
  - Pancreatic carcinoma [Unknown]
